FAERS Safety Report 7514967-6 (Version None)
Quarter: 2011Q2

REPORT INFORMATION
  Report Type: 
  Country: None (occurrence: None)
  Receive Date: 20110601
  Receipt Date: 20110509
  Transmission Date: 20111010
  Serious: Yes (Other)
  Sender: FDA-Public Use
  Company Number: US-BAYER-201015115NA

PATIENT
  Age: 34 Year
  Sex: Female
  Weight: 90.703 kg

DRUGS (3)
  1. YASMIN [Suspect]
     Indication: CONTRACEPTION
     Route: 048
  2. YAZ [Suspect]
     Indication: PRODUCT USED FOR UNKNOWN INDICATION
  3. ACETAMINOPHEN [Concomitant]

REACTIONS (5)
  - VENA CAVA THROMBOSIS [None]
  - INJURY [None]
  - APPENDICITIS [None]
  - DEPRESSION [None]
  - ANXIETY [None]
